FAERS Safety Report 6248684-X (Version None)
Quarter: 2009Q2

REPORT INFORMATION
  Report Type: 
  Country: None (occurrence: None)
  Receive Date: 20090624
  Receipt Date: 20090316
  Transmission Date: 20091009
  Serious: Yes (Hospitalization)
  Sender: FDA-Public Use
  Company Number: ADE 09035

PATIENT
  Age: 13 Year
  Sex: Female
  Weight: 47.6277 kg

DRUGS (4)
  1. POLYETHYLENE GLYCOL 3350 [Suspect]
     Indication: CONSTIPATION
     Dosage: 17 G / DAILY / ORAL
     Route: 048
     Dates: start: 20090306, end: 20090307
  2. SYMBICORT [Concomitant]
  3. ALLEGRA [Concomitant]
  4. PREVACID [Concomitant]

REACTIONS (1)
  - UNEVALUABLE EVENT [None]
